FAERS Safety Report 21965654 (Version 3)
Quarter: 2023Q1

REPORT INFORMATION
  Report Type: Spontaneous
  Country: HR (occurrence: HR)
  Receive Date: 20230208
  Receipt Date: 20230303
  Transmission Date: 20230417
  Serious: Yes (Other)
  Sender: FDA-Public Use
  Company Number: HR-BAYER-2023P007807

PATIENT
  Age: 60 Year
  Sex: Male

DRUGS (1)
  1. EYLEA [Suspect]
     Active Substance: AFLIBERCEPT
     Indication: Diabetic retinal oedema
     Dosage: TOTAL 9 DOSES, SOLUTION FOR INJECTION
     Dates: start: 2020

REACTIONS (1)
  - Retinal pigment epithelial tear [Unknown]
